FAERS Safety Report 8237366 (Version 2)
Quarter: 2016Q3

REPORT INFORMATION
  Report Type: Report from Study
  Country: US (occurrence: US)
  Receive Date: 20111109
  Receipt Date: 20160919
  Transmission Date: 20161109
  Serious: Yes (Life-Threatening, Hospitalization, Other)
  Sender: FDA-Public Use
  Company Number: US-ROCHE-798074

PATIENT
  Age: 71 Year
  Sex: Male
  Weight: 66.4 kg

DRUGS (6)
  1. PREDNISONE. [Suspect]
     Active Substance: PREDNISONE
     Dosage: TOTAL DOSE 27.5 MG, DELAYED 7 DAYS
     Route: 048
     Dates: start: 20110722
  2. BEVACIZUMAB [Suspect]
     Active Substance: BEVACIZUMAB
     Indication: PROSTATE CANCER METASTATIC
     Dosage: LAST DOSE:14 JUN 2011, IV OVER 30-90 MINUTES ON DAY 1.
     Route: 042
  3. DOCETAXEL. [Suspect]
     Active Substance: DOCETAXEL
     Indication: PROSTATE CANCER METASTATIC
     Dosage: OVER 60 MINUTES ON DAY 1. LAST DOSE PRIOR TO SAE ON 14 JUN 2011.
     Route: 042
     Dates: start: 20100712
  4. PREDNISONE. [Suspect]
     Active Substance: PREDNISONE
     Indication: PROSTATE CANCER METASTATIC
     Dosage: LAST DOSE 11/JUL/2011
     Route: 048
     Dates: start: 20100712
  5. LENALIDOMIDE [Suspect]
     Active Substance: LENALIDOMIDE
     Indication: PROSTATE CANCER METASTATIC
     Dosage: QD, ON DAYS 1-14. LAST DOSE PRIOR TO SAE ON 27 JUN 2011.
     Route: 048
  6. LENALIDOMIDE [Suspect]
     Active Substance: LENALIDOMIDE
     Dosage: DELAYED FOR 7 DAYS. TOTAL DOSE 275 MG
     Route: 048

REACTIONS (8)
  - Haematuria [Recovered/Resolved]
  - Acute kidney injury [Not Recovered/Not Resolved]
  - Blood creatinine increased [Not Recovered/Not Resolved]
  - Urinary tract infection [Not Recovered/Not Resolved]
  - Neutrophil count decreased [Unknown]
  - Anaemia [Recovered/Resolved]
  - Sepsis [Not Recovered/Not Resolved]
  - Hypoalbuminaemia [Not Recovered/Not Resolved]

NARRATIVE: CASE EVENT DATE: 20110626
